FAERS Safety Report 22623490 (Version 1)
Quarter: 2023Q2

REPORT INFORMATION
  Report Type: Spontaneous
  Country: PT (occurrence: PT)
  Receive Date: 20230621
  Receipt Date: 20230621
  Transmission Date: 20230721
  Serious: Yes (Other)
  Sender: FDA-Public Use
  Company Number: PT-SA-2023SA187694

PATIENT
  Age: 24 Year
  Sex: Male
  Weight: 78 kg

DRUGS (8)
  1. ALPROLIX [Suspect]
     Active Substance: EFTRENONACOG ALFA
     Indication: Factor IX deficiency
     Dosage: 3000 IU, QW (30UI/KG IN THE SAME, RIGHT COUNTS 38UI)
     Route: 065
     Dates: start: 20200623
  2. ALPROLIX [Suspect]
     Active Substance: EFTRENONACOG ALFA
     Indication: Factor IX deficiency
     Dosage: 3000 IU, QW (30UI/KG IN THE SAME, RIGHT COUNTS 38UI)
     Route: 065
     Dates: start: 20200623
  3. ALPROLIX [Suspect]
     Active Substance: EFTRENONACOG ALFA
     Dosage: 4000 IU, QW
     Route: 065
     Dates: start: 2021
  4. ALPROLIX [Suspect]
     Active Substance: EFTRENONACOG ALFA
     Dosage: 4000 IU, QW
     Route: 065
     Dates: start: 2021
  5. ALPROLIX [Suspect]
     Active Substance: EFTRENONACOG ALFA
     Dosage: 1500 IU, QOD (20IU/KG, EVERY 48 HOURS)
     Route: 065
     Dates: start: 202302, end: 202302
  6. ALPROLIX [Suspect]
     Active Substance: EFTRENONACOG ALFA
     Dosage: 1500 IU, QOD (20IU/KG, EVERY 48 HOURS)
     Route: 065
     Dates: start: 202302, end: 202302
  7. ALPROLIX [Suspect]
     Active Substance: EFTRENONACOG ALFA
     Dosage: 4000 IU, QW
     Route: 065
     Dates: start: 202302
  8. ALPROLIX [Suspect]
     Active Substance: EFTRENONACOG ALFA
     Dosage: 4000 IU, QW
     Route: 065
     Dates: start: 202302

REACTIONS (11)
  - Haemophilic arthropathy [Recovering/Resolving]
  - Condition aggravated [Recovering/Resolving]
  - Joint swelling [Recovering/Resolving]
  - Joint range of motion decreased [Recovering/Resolving]
  - Arthralgia [Recovering/Resolving]
  - Nephropathy [Unknown]
  - Back pain [Recovered/Resolved]
  - Dysuria [Recovered/Resolved]
  - Gait disturbance [Recovering/Resolving]
  - Injury [Recovering/Resolving]
  - Haematuria [Recovered/Resolved]

NARRATIVE: CASE EVENT DATE: 20220101
